FAERS Safety Report 9648582 (Version 1)
Quarter: 2013Q4

REPORT INFORMATION
  Report Type: Spontaneous
  Country: BR (occurrence: BR)
  Receive Date: 20131028
  Receipt Date: 20131028
  Transmission Date: 20140711
  Serious: Yes (Other)
  Sender: FDA-Public Use
  Company Number: BR-PFIZER INC-2013301394

PATIENT
  Age: 76 Year
  Sex: Male
  Weight: 60 kg

DRUGS (3)
  1. XALATAN [Suspect]
     Indication: GLAUCOMA
     Dosage: 3 UG, 1 DROP IN EACH EYE 1X/DAY
     Route: 047
     Dates: start: 20100816
  2. ASDRON [Concomitant]
     Dosage: UNK
  3. DISGREN [Concomitant]
     Dosage: UNK

REACTIONS (1)
  - Cataract [Unknown]
